FAERS Safety Report 4511808-6 (Version None)
Quarter: 2004Q4

REPORT INFORMATION
  Report Type: 
  Country: None (occurrence: None)
  Receive Date: 20041122
  Receipt Date: 20041109
  Transmission Date: 20050328
  Serious: Yes (Other)
  Sender: FDA-Public Use
  Company Number: 2004091294

PATIENT
  Age: 27 Month
  Sex: Male

DRUGS (1)
  1. ZYRTEC [Suspect]
     Indication: HYPERSENSITIVITY
     Dosage: 5 MG (1 IN 1 D), ORAL
     Route: 048
     Dates: start: 20031201

REACTIONS (1)
  - BLOOD GLUCOSE INCREASED [None]
